FAERS Safety Report 12867117 (Version 1)
Quarter: 2016Q4

REPORT INFORMATION
  Report Type: Spontaneous
  Country: US (occurrence: US)
  Receive Date: 20161020
  Receipt Date: 20161020
  Transmission Date: 20170207
  Serious: No
  Sender: FDA-Public Use
  Company Number: US-JAZZ-2016-US-014709

PATIENT
  Sex: Male

DRUGS (23)
  1. CLONAZEPAM. [Concomitant]
     Active Substance: CLONAZEPAM
  2. AMBIEN [Concomitant]
     Active Substance: ZOLPIDEM TARTRATE
  3. CIALIS [Concomitant]
     Active Substance: TADALAFIL
  4. TESTOSTERONE CYPIONATE. [Concomitant]
     Active Substance: TESTOSTERONE CYPIONATE
  5. ZITHROMAX [Concomitant]
     Active Substance: AZITHROMYCIN DIHYDRATE
  6. AMBIEN CR [Concomitant]
     Active Substance: ZOLPIDEM TARTRATE
  7. TRAZODONE [Concomitant]
     Active Substance: TRAZODONE HYDROCHLORIDE
  8. XYREM [Suspect]
     Active Substance: SODIUM OXYBATE
     Indication: NARCOLEPSY
     Dosage: 2.25 G, BID
     Route: 048
     Dates: start: 200304, end: 200304
  9. RITALIN [Concomitant]
     Active Substance: METHYLPHENIDATE HYDROCHLORIDE
  10. XYREM [Suspect]
     Active Substance: SODIUM OXYBATE
     Dosage: 4.5 G, BID
     Route: 048
     Dates: start: 200810
  11. TOPAMAX [Concomitant]
     Active Substance: TOPIRAMATE
  12. LOVAZA [Concomitant]
     Active Substance: OMEGA-3-ACID ETHYL ESTERS
  13. ASTELIN [Concomitant]
     Active Substance: AZELASTINE HYDROCHLORIDE
  14. NUVIGIL [Concomitant]
     Active Substance: ARMODAFINIL
  15. ANDROGEL [Concomitant]
     Active Substance: TESTOSTERONE
  16. IBUPROFEN. [Concomitant]
     Active Substance: IBUPROFEN
  17. AMINO ACID [Concomitant]
     Active Substance: AMINO ACIDS
  18. XYREM [Suspect]
     Active Substance: SODIUM OXYBATE
     Indication: CATAPLEXY
     Dosage: DOSE ADJUSTMENTS
     Route: 048
     Dates: start: 200304, end: 200810
  19. SAVELLA [Concomitant]
     Active Substance: MILNACIPRAN HYDROCHLORIDE
  20. LEVAQUIN [Concomitant]
     Active Substance: LEVOFLOXACIN
  21. DEXILANT [Concomitant]
     Active Substance: DEXLANSOPRAZOLE
  22. MELATONIN [Concomitant]
     Active Substance: MELATONIN
  23. PROVIGIL [Concomitant]
     Active Substance: MODAFINIL

REACTIONS (1)
  - Obsessive-compulsive disorder [Not Recovered/Not Resolved]
